FAERS Safety Report 5333942-3 (Version None)
Quarter: 2007Q2

REPORT INFORMATION
  Report Type: 
  Country: None (occurrence: None)
  Receive Date: 20070524
  Receipt Date: 20070516
  Transmission Date: 20071010
  Serious: Yes (Life-Threatening, Hospitalization)
  Sender: FDA-Public Use
  Company Number: NL-PFIZER INC-2006155537

PATIENT
  Sex: Female
  Weight: 69 kg

DRUGS (8)
  1. SILDENAFIL (PAH) [Suspect]
     Indication: PULMONARY HYPERTENSION
     Route: 048
  2. FLOLAN [Concomitant]
  3. LITHIUM CARBONATE [Concomitant]
  4. VALIUM [Concomitant]
  5. ANAFRANIL [Concomitant]
  6. TEMAZEPAM [Concomitant]
  7. NOZINAN [Concomitant]
  8. PHENERGAN ^AVENTIS PHARMA^ [Concomitant]

REACTIONS (1)
  - SUICIDE ATTEMPT [None]
